FAERS Safety Report 5510719-7 (Version None)
Quarter: 2007Q4

REPORT INFORMATION
  Report Type: 
  Country: None (occurrence: None)
  Receive Date: 20071108
  Receipt Date: 20071106
  Transmission Date: 20080405
  Serious: Yes (Death, Hospitalization)
  Sender: FDA-Public Use
  Company Number: A0691702A

PATIENT
  Sex: Female

DRUGS (4)
  1. FLONASE [Suspect]
     Indication: MULTIPLE ALLERGIES
     Route: 045
     Dates: end: 20070901
  2. WATER PILL [Concomitant]
  3. VITAMINS [Concomitant]
  4. CORGARD [Concomitant]

REACTIONS (1)
  - T-CELL LYMPHOMA [None]
